FAERS Safety Report 18473412 (Version 1)
Quarter: 2020Q4

REPORT INFORMATION
  Report Type: Report from Study
  Country: None (occurrence: CA)
  Receive Date: 20201106
  Receipt Date: 20201106
  Transmission Date: 20210114
  Serious: Yes (Other)
  Sender: FDA-Public Use
  Company Number: CA-ABBVIE-20K-028-3640808-00

PATIENT
  Age: 87 Year
  Sex: Male

DRUGS (1)
  1. IMBRUVICA [Suspect]
     Active Substance: IBRUTINIB
     Indication: LEUKAEMIA
     Route: 048

REACTIONS (4)
  - Inappropriate schedule of product administration [Unknown]
  - Postoperative wound infection [Unknown]
  - Off label use [Unknown]
  - Cyst removal [Unknown]

NARRATIVE: CASE EVENT DATE: 20201015
